FAERS Safety Report 5162419-3 (Version None)
Quarter: 2006Q4

REPORT INFORMATION
  Report Type: 
  Country: None (occurrence: None)
  Receive Date: 20061128
  Receipt Date: 20061128
  Transmission Date: 20070319
  Serious: Yes (Hospitalization, Other)
  Sender: FDA-Public Use
  Company Number: None

PATIENT
  Age: 57 Year
  Sex: Male
  Weight: 86.1834 kg

DRUGS (9)
  1. ENALAPRIL MALEATE [Suspect]
     Indication: BLOOD PRESSURE
     Dosage: 10 MG HS
     Dates: start: 20050701, end: 20060801
  2. SIMVASTATIN [Suspect]
     Indication: HYPERLIPIDAEMIA
     Dosage: 20 MG HS
     Dates: start: 20060727, end: 20060802
  3. NICOTINE [Concomitant]
  4. ELAVIL [Concomitant]
  5. VALIUM [Concomitant]
  6. METHADONE HCL [Concomitant]
  7. SOMA [Concomitant]
  8. DOCUSATE [Concomitant]
  9. SENNOSIDES [Concomitant]

REACTIONS (5)
  - EYE SWELLING [None]
  - PHARYNGEAL OEDEMA [None]
  - RASH MACULO-PAPULAR [None]
  - SWELLING FACE [None]
  - URTICARIA [None]
